FAERS Safety Report 8206513-9 (Version None)
Quarter: 2012Q1

REPORT INFORMATION
  Report Type: 
  Country: None (occurrence: None)
  Receive Date: 20120313
  Receipt Date: 20120227
  Transmission Date: 20120608
  Serious: Yes (Other)
  Sender: FDA-Public Use
  Company Number: CA-WATSON-2012-04221

PATIENT
  Age: 21 Year
  Sex: Female

DRUGS (3)
  1. VALPROATE SODIUM [Suspect]
     Dosage: 1920 MG, DAILY
     Route: 065
  2. VALPROATE SODIUM [Suspect]
     Indication: CONVULSION
     Dosage: 3600 MG, DAILY (SUBESEQUENT)
     Route: 065
  3. MEROPENEM [Suspect]

REACTIONS (3)
  - CONVULSION [None]
  - DRUG LEVEL DECREASED [None]
  - DRUG INTERACTION [None]
